FAERS Safety Report 7387939-2 (Version None)
Quarter: 2011Q2

REPORT INFORMATION
  Report Type: 
  Country: None (occurrence: None)
  Receive Date: 20110401
  Receipt Date: 20110323
  Transmission Date: 20111010
  Serious: Yes (Hospitalization)
  Sender: FDA-Public Use
  Company Number: US-BIOGENIDEC-2010BI031738

PATIENT
  Sex: Male

DRUGS (1)
  1. AVONEX [Suspect]
     Indication: MULTIPLE SCLEROSIS
     Route: 030
     Dates: start: 20070613

REACTIONS (6)
  - HEART VALVE REPLACEMENT [None]
  - COELIAC DISEASE [None]
  - DISTURBANCE IN ATTENTION [None]
  - MALAISE [None]
  - RHEUMATOID ARTHRITIS [None]
  - ALLERGIC TRANSFUSION REACTION [None]
